FAERS Safety Report 10248498 (Version 1)
Quarter: 2014Q2

REPORT INFORMATION
  Report Type: Spontaneous
  Country: US (occurrence: US)
  Receive Date: 20140620
  Receipt Date: 20140620
  Transmission Date: 20141212
  Serious: No
  Sender: FDA-Public Use
  Company Number: US-ASTRAZENECA-2014SE40719

PATIENT
  Age: 68 Year
  Sex: Female
  Weight: 52.6 kg

DRUGS (5)
  1. OMEPRAZOLE [Suspect]
     Indication: GASTROOESOPHAGEAL REFLUX DISEASE
     Route: 048
     Dates: start: 2013
  2. OMEPRAZOLE [Suspect]
     Indication: GASTROOESOPHAGEAL REFLUX DISEASE
     Dosage: TOOK TWO CAPSULES INSTEAD OF ONE
     Route: 048
  3. SIMVISTATIN [Concomitant]
     Indication: BLOOD CHOLESTEROL ABNORMAL
     Route: 048
     Dates: start: 2007
  4. CLONAZEPAM [Concomitant]
     Indication: ANXIETY
     Route: 048
     Dates: start: 1980
  5. CELEXA [Concomitant]
     Indication: DEPRESSION
     Route: 048
     Dates: start: 2014

REACTIONS (3)
  - Adverse drug reaction [Unknown]
  - Extra dose administered [Not Recovered/Not Resolved]
  - Drug ineffective [Unknown]
